FAERS Safety Report 5049265-6 (Version None)
Quarter: 2006Q3

REPORT INFORMATION
  Report Type: 
  Country: None (occurrence: None)
  Receive Date: 20060706
  Receipt Date: 20060627
  Transmission Date: 20061208
  Serious: Yes (Hospitalization)
  Sender: FDA-Public Use
  Company Number: 2006080629

PATIENT
  Age: 68 Year
  Sex: Male

DRUGS (3)
  1. LIPITOR [Suspect]
     Indication: HYPERCHOLESTEROLAEMIA
     Dosage: ORAL
     Route: 048
     Dates: start: 20060401
  2. DIAZEPAM [Suspect]
     Indication: INSOMNIA
     Dosage: (AS NEEDED); ORAL
     Route: 048
  3. BEPRICOR (BEPRIDIL) [Concomitant]

REACTIONS (2)
  - INTERSTITIAL LUNG DISEASE [None]
  - STOMACH DISCOMFORT [None]
